FAERS Safety Report 8218117-2 (Version None)
Quarter: 2012Q1

REPORT INFORMATION
  Report Type: 
  Country: None (occurrence: None)
  Receive Date: 20120316
  Receipt Date: 20120316
  Transmission Date: 20120608
  Serious: No
  Sender: FDA-Public Use
  Company Number: None

PATIENT
  Age: 61 Year
  Sex: Male
  Weight: 93.4 kg

DRUGS (1)
  1. OCTREOTIDE ACETATE [Suspect]
     Dosage: 500 MCG ONCE IV
     Route: 042
     Dates: start: 20120109, end: 20120109

REACTIONS (3)
  - HYPERTENSION [None]
  - FLUSHING [None]
  - CHEST PAIN [None]
